FAERS Safety Report 5672045-5 (Version None)
Quarter: 2008Q1

REPORT INFORMATION
  Report Type: 
  Country: None (occurrence: None)
  Receive Date: 20080317
  Receipt Date: 20080317
  Transmission Date: 20080703
  Serious: Yes (Hospitalization)
  Sender: FDA-Public Use
  Company Number: None

PATIENT
  Sex: Female
  Weight: 64 kg

DRUGS (1)
  1. SULFASALAZINE [Suspect]
     Indication: COLITIS
     Dosage: 1000MG TID PO
     Route: 048
     Dates: start: 20080109, end: 20080206

REACTIONS (3)
  - ERYTHEMA [None]
  - PHARYNGOLARYNGEAL PAIN [None]
  - RASH PRURITIC [None]
